FAERS Safety Report 16867627 (Version 1)
Quarter: 2019Q3

REPORT INFORMATION
  Report Type: Report from Study
  Country: JP (occurrence: JP)
  Receive Date: 20190930
  Receipt Date: 20190930
  Transmission Date: 20191005
  Serious: Yes (Death)
  Sender: FDA-Public Use
  Company Number: JP-ROCHE-2419234

PATIENT
  Age: 84 Year
  Sex: Female

DRUGS (3)
  1. SITAGLIPTIN PHOSPHATE MONOHYDRATE [Concomitant]
     Active Substance: SITAGLIPTIN PHOSPHATE
     Indication: DIABETES MELLITUS
     Route: 065
  2. RITUXIMAB. [Suspect]
     Active Substance: RITUXIMAB
     Indication: ACQUIRED HAEMOPHILIA
     Dosage: 375 MG/M2X 3
     Route: 041
  3. PREDNISOLONE. [Suspect]
     Active Substance: PREDNISOLONE
     Indication: ACQUIRED HAEMOPHILIA
     Route: 065

REACTIONS (2)
  - Clostridium difficile colitis [Fatal]
  - Multiple organ dysfunction syndrome [Fatal]
